FAERS Safety Report 8798882 (Version 1)
Quarter: 2012Q4

REPORT INFORMATION
  Report Type: Spontaneous
  Country: US (occurrence: None)
  Receive Date: 20120918
  Receipt Date: 20120918
  Transmission Date: 20130627
  Serious: No
  Sender: FDA-Public Use
  Company Number: None

PATIENT
  Sex: Female

DRUGS (3)
  1. WELLBUTRIN [Suspect]
     Route: 048
     Dates: start: 20120820
  2. LEXAPRO [Concomitant]
  3. TURNIP [Concomitant]

REACTIONS (2)
  - Musculoskeletal stiffness [None]
  - Product substitution issue [None]
